FAERS Safety Report 23035966 (Version 1)
Quarter: 2023Q4

REPORT INFORMATION
  Report Type: Spontaneous
  Country: IT (occurrence: IT)
  Receive Date: 20231006
  Receipt Date: 20231006
  Transmission Date: 20240109
  Serious: Yes (Hospitalization, Other)
  Sender: FDA-Public Use
  Company Number: None

PATIENT
  Age: 34 Year
  Sex: Male

DRUGS (1)
  1. VIMPAT [Suspect]
     Active Substance: LACOSAMIDE
     Indication: Product used for unknown indication
     Dosage: 2400 MILLIGRAM  200 MG 12 TABLETS
     Route: 048

REACTIONS (5)
  - Disorganised speech [Recovering/Resolving]
  - Toxicity to various agents [Recovering/Resolving]
  - Sopor [Recovering/Resolving]
  - Drug abuse [Unknown]
  - Overdose [Unknown]

NARRATIVE: CASE EVENT DATE: 20221024
